FAERS Safety Report 17760536 (Version 1)
Quarter: 2020Q2

REPORT INFORMATION
  Report Type: Spontaneous
  Country: GB (occurrence: GB)
  Receive Date: 20200508
  Receipt Date: 20200508
  Transmission Date: 20200714
  Serious: Yes (Other)
  Sender: FDA-Public Use
  Company Number: GB-TORRENT-00023530

PATIENT
  Age: 32 Year
  Sex: Female

DRUGS (10)
  1. SALBUTAMOL [Concomitant]
     Active Substance: ALBUTEROL
     Indication: ASTHMA
     Dosage: UNKNOWN
     Route: 055
  2. FLUTICASONE/FORMOTEROL [Suspect]
     Active Substance: FLUTICASONE\FORMOTEROL
     Indication: ASTHMA
     Dosage: 4 DOSAGE FORMS DAILY; PRESSURISED METERED DOSE INHALER 2PUFFS TWICE DAILY THROUGH A SPACER; 1 DOSAGE
     Route: 055
  3. MONTELUKAST [Suspect]
     Active Substance: MONTELUKAST SODIUM
     Indication: ASTHMA
     Dosage: UNKNOWN
     Route: 065
  4. OMEPRAZOLE. [Concomitant]
     Active Substance: OMEPRAZOLE
     Indication: GASTROOESOPHAGEAL REFLUX DISEASE
     Dosage: UNKNOWN
  5. PREDNISOLONE. [Suspect]
     Active Substance: PREDNISOLONE
     Indication: ASTHMA
     Route: 048
  6. TIOTROPIUM [Concomitant]
     Active Substance: TIOTROPIUM
     Indication: ASTHMA
     Dosage: UNKNOWN
     Route: 055
  7. MOMETASONE [Suspect]
     Active Substance: MOMETASONE
     Indication: RHINITIS ALLERGIC
     Dosage: UNKNOWN
     Route: 045
  8. BUDESONIDE/FORMOTEROL [Suspect]
     Active Substance: BUDESONIDE\FORMOTEROL
     Indication: ASTHMA
     Dosage: 5 DOSAGE FORMS DAILY; BUDESONIDE/FORMOTEROL 400 MICROG/12 MICROG, DRY POWDER INHALER, 1 DOSAGE FORM
     Route: 055
  9. RESLIZUMAB [Suspect]
     Active Substance: RESLIZUMAB
     Indication: ASTHMA
     Dosage: UNKNOWN
     Route: 065
  10. MEPOLIZUMAB [Suspect]
     Active Substance: MEPOLIZUMAB
     Indication: ASTHMA
     Dosage: UNKNOWN
     Route: 065

REACTIONS (9)
  - Urticaria [Unknown]
  - Myalgia [Unknown]
  - Asthma [Recovering/Resolving]
  - Alopecia [Recovering/Resolving]
  - Headache [Unknown]
  - Paradoxical drug reaction [Unknown]
  - Adrenal suppression [Unknown]
  - Oropharyngeal pain [Unknown]
  - Drug ineffective [Unknown]
